FAERS Safety Report 7180340-6 (Version None)
Quarter: 2010Q4

REPORT INFORMATION
  Report Type: 
  Country: None (occurrence: None)
  Receive Date: 20101221
  Receipt Date: 20101217
  Transmission Date: 20110411
  Serious: Yes (Hospitalization)
  Sender: FDA-Public Use
  Company Number: A0897659A

PATIENT
  Age: 68 Year
  Sex: Female

DRUGS (5)
  1. ADVAIR [Suspect]
     Indication: ASTHMA
     Dosage: 1PUFF TWICE PER DAY
     Route: 055
     Dates: start: 20080101
  2. ADVAIR [Suspect]
     Dosage: 2PUFF TWICE PER DAY
     Route: 055
     Dates: start: 20080101
  3. PAXIL [Concomitant]
  4. NEXIUM [Concomitant]
  5. PROVENTIL [Concomitant]

REACTIONS (4)
  - COUGH [None]
  - DYSPHONIA [None]
  - DYSPNOEA [None]
  - MUCOUS MEMBRANE DISORDER [None]
